FAERS Safety Report 12831800 (Version 2)
Quarter: 2017Q3

REPORT INFORMATION
  Report Type: Report from Study
  Country: US (occurrence: US)
  Receive Date: 20161010
  Receipt Date: 20170808
  Transmission Date: 20171127
  Serious: Yes (Death, Life-Threatening, Hospitalization, Other)
  Sender: FDA-Public Use
  Company Number: US-ROCHE-1243130

PATIENT
  Age: 65 Year
  Sex: Male
  Weight: 93 kg

DRUGS (4)
  1. LENALIDOMIDE [Suspect]
     Active Substance: LENALIDOMIDE
     Indication: PROSTATE CANCER
     Dosage: COURSE NUMBER 1; DOSE INTERRUPTED ON 13/MAY/2013 AND 14/MAY/2013
     Route: 048
     Dates: start: 20120717, end: 20141020
  2. DOCETAXEL. [Suspect]
     Active Substance: DOCETAXEL
     Indication: PROSTATE CANCER
     Dosage: OVER 60 MINUTES ON DAY 1 OF EVERY 21 DAYS
     Route: 042
     Dates: start: 20120717, end: 20141020
  3. PREDNISONE. [Suspect]
     Active Substance: PREDNISONE
     Indication: PROSTATE CANCER
     Route: 048
     Dates: start: 20120717, end: 20141020
  4. BEVACIZUMAB. [Suspect]
     Active Substance: BEVACIZUMAB
     Indication: PROSTATE CANCER
     Dosage: FREQUENCY: OVER 30-90 MINUTES ON DAY 1 OF EVERY 21 DAYS
     Route: 042
     Dates: start: 20120717, end: 20141020

REACTIONS (11)
  - Neutrophil count decreased [Unknown]
  - Hyperglycaemia [Unknown]
  - Proteinuria [Unknown]
  - Back pain [Unknown]
  - Vomiting [Recovered/Resolved]
  - Neutrophil count decreased [Recovered/Resolved with Sequelae]
  - Nausea [Recovered/Resolved]
  - Hypertension [Unknown]
  - Diarrhoea [Recovered/Resolved]
  - Platelet count decreased [Unknown]
  - Disease progression [Fatal]

NARRATIVE: CASE EVENT DATE: 20130513
